FAERS Safety Report 25267423 (Version 1)
Quarter: 2025Q2

REPORT INFORMATION
  Report Type: Spontaneous
  Country: EG (occurrence: EG)
  Receive Date: 20250505
  Receipt Date: 20250505
  Transmission Date: 20250717
  Serious: Yes (Other)
  Sender: HIKMA
  Company Number: EG-HIKMA PHARMACEUTICALS-EG-H14001-25-03794

PATIENT
  Age: 66 Year
  Sex: Female
  Weight: 79 kg

DRUGS (4)
  1. GEMCITABINE [Suspect]
     Active Substance: GEMCITABINE
     Indication: Breast cancer
     Dosage: 1740 MILLIGRAM, 3W
     Route: 041
  2. GEMCITABINE [Suspect]
     Active Substance: GEMCITABINE
     Dosage: 1740 MILLIGRAM, 3W
     Route: 041
     Dates: start: 20250320
  3. CISPLATIN [Suspect]
     Active Substance: CISPLATIN
     Indication: Breast cancer
     Dosage: 43.5 MILLIGRAM, 3W
     Route: 041
  4. CISPLATIN [Suspect]
     Active Substance: CISPLATIN
     Dosage: 43.5 MILLIGRAM, 3W
     Route: 041
     Dates: start: 20250320

REACTIONS (3)
  - Hypoaesthesia [Not Recovered/Not Resolved]
  - Neutropenia [Unknown]
  - White blood cell count decreased [Unknown]

NARRATIVE: CASE EVENT DATE: 20250320
